FAERS Safety Report 23217456 (Version 1)
Quarter: 2023Q4

REPORT INFORMATION
  Report Type: Spontaneous
  Country: US (occurrence: None)
  Receive Date: 20231121
  Receipt Date: 20231121
  Transmission Date: 20240109
  Serious: No
  Sender: FDA-Public Use
  Company Number: None

PATIENT
  Age: 69 Year
  Sex: Female
  Weight: 54 kg

DRUGS (4)
  1. QUVIVIQ [Suspect]
     Active Substance: DARIDOREXANT
     Indication: Insomnia
     Dosage: OTHER QUANTITY : 14 TABLET(S);?FREQUENCY : AT BEDTIME;?
     Dates: start: 20231114, end: 20231121
  2. LOSARTAN [Concomitant]
     Active Substance: LOSARTAN
  3. inspire implanted device [Concomitant]
  4. VYVANSE [Concomitant]
     Active Substance: LISDEXAMFETAMINE DIMESYLATE

REACTIONS (4)
  - Headache [None]
  - Muscle spasms [None]
  - Nausea [None]
  - Muscle tightness [None]

NARRATIVE: CASE EVENT DATE: 20231116
